FAERS Safety Report 18780949 (Version 1)
Quarter: 2021Q1

REPORT INFORMATION
  Report Type: Spontaneous
  Country: US (occurrence: US)
  Receive Date: 20210123
  Receipt Date: 20210123
  Transmission Date: 20210419
  Serious: No
  Sender: FDA-Public Use
  Company Number: None

PATIENT
  Age: 61 Year
  Sex: Female
  Weight: 53.1 kg

DRUGS (1)
  1. CHLORHEXIDINE GLUCONATE ORAL RINSE [Suspect]
     Active Substance: CHLORHEXIDINE GLUCONATE
     Dosage: ?          QUANTITY:473 1 PINT;?
     Route: 048
     Dates: start: 20200919, end: 20201226

REACTIONS (3)
  - Oral discomfort [None]
  - Product colour issue [None]
  - Body temperature increased [None]

NARRATIVE: CASE EVENT DATE: 20201226
